FAERS Safety Report 18382187 (Version 1)
Quarter: 2020Q4

REPORT INFORMATION
  Report Type: Spontaneous
  Country: PL (occurrence: PL)
  Receive Date: 20201014
  Receipt Date: 20201014
  Transmission Date: 20210114
  Serious: Yes (Hospitalization, Other)
  Sender: FDA-Public Use
  Company Number: PL-PFIZER INC-2020388191

PATIENT
  Age: 64 Year
  Sex: Male

DRUGS (7)
  1. ATORVASTATIN CALCIUM. [Suspect]
     Active Substance: ATORVASTATIN CALCIUM
     Dosage: UNK
  2. GLICLAZIDE [Suspect]
     Active Substance: GLICLAZIDE
     Dosage: UNK
  3. EPLERENONE. [Concomitant]
     Active Substance: EPLERENONE
     Dosage: UNK
  4. ENTRESTO [Suspect]
     Active Substance: SACUBITRIL\VALSARTAN
     Dosage: UNK
  5. METOPROLOL. [Suspect]
     Active Substance: METOPROLOL
     Dosage: UNK
  6. METFORMIN [Suspect]
     Active Substance: METFORMIN HYDROCHLORIDE
     Indication: TYPE 2 DIABETES MELLITUS
     Dosage: UNK
  7. VALSARTAN. [Suspect]
     Active Substance: VALSARTAN
     Dosage: UNK

REACTIONS (29)
  - Cardiac failure acute [Unknown]
  - Dyspnoea [Unknown]
  - Pulmonary oedema [Unknown]
  - Left ventricular dysfunction [Unknown]
  - Mitral valve incompetence [Unknown]
  - Peripheral coldness [Unknown]
  - Anxiety [Unknown]
  - Type 2 diabetes mellitus [Unknown]
  - Conduction disorder [Unknown]
  - Pyonephrosis [Unknown]
  - Poor peripheral circulation [Unknown]
  - Depressed mood [Unknown]
  - Somnolence [Unknown]
  - Tachycardia [Unknown]
  - Hyperthyroidism [Unknown]
  - Hypotonia [Unknown]
  - Peripheral vascular disorder [Unknown]
  - Dehydration [Unknown]
  - Hypothyroidism [Unknown]
  - Heart rate irregular [Unknown]
  - Decreased activity [Recovering/Resolving]
  - Right ventricular dysfunction [Not Recovered/Not Resolved]
  - Hypotension [Unknown]
  - Dizziness [Unknown]
  - Chest discomfort [Recovered/Resolved]
  - Asthenia [Unknown]
  - Hyperkalaemia [Unknown]
  - Rales [Unknown]
  - Arteriosclerosis [Unknown]

NARRATIVE: CASE EVENT DATE: 2015
